FAERS Safety Report 13585852 (Version 2)
Quarter: 2017Q3

REPORT INFORMATION
  Report Type: Spontaneous
  Country: JP (occurrence: JP)
  Receive Date: 20170526
  Receipt Date: 20170721
  Transmission Date: 20171127
  Serious: Yes (Death)
  Sender: FDA-Public Use
  Company Number: JP-ASTRAZENECA-2017SE55400

PATIENT
  Age: 78 Year
  Sex: Female

DRUGS (8)
  1. MEROPEN [Suspect]
     Active Substance: MEROPENEM
     Route: 041
  2. CUBICIN [Concomitant]
     Active Substance: DAPTOMYCIN
     Route: 042
  3. FLUCONAZOLE. [Concomitant]
     Active Substance: FLUCONAZOLE
     Route: 065
  4. TAZOBACTAM SODIUM / PIPERACILLIN SODIUM [Concomitant]
     Route: 042
  5. VORICONAZOLE. [Concomitant]
     Active Substance: VORICONAZOLE
     Route: 065
  6. AMBISOME [Suspect]
     Active Substance: AMPHOTERICIN B
     Route: 041
  7. FIRSTCIN [Concomitant]
     Active Substance: CEFOZOPRAN HYDROCHLORIDE
     Route: 042
  8. ANCOTIL [Concomitant]
     Active Substance: FLUCYTOSINE
     Route: 048

REACTIONS (2)
  - Pancytopenia [Fatal]
  - Corynebacterium infection [Fatal]
